FAERS Safety Report 10369097 (Version 2)
Quarter: 2014Q4

REPORT INFORMATION
  Report Type: Spontaneous
  Country: US (occurrence: US)
  Receive Date: 20140807
  Receipt Date: 20141119
  Transmission Date: 20150528
  Serious: Yes (Other)
  Sender: FDA-Public Use
  Company Number: US-JNJFOC-20140719687

PATIENT

DRUGS (10)
  1. CYCLOPHOSPHAMIDE. [Suspect]
     Active Substance: CYCLOPHOSPHAMIDE
     Indication: RETINOBLASTOMA
     Dosage: FOR AGE GROUP LESS THAN 12 MONTHS
     Route: 042
  2. CARBOPLATIN. [Suspect]
     Active Substance: CARBOPLATIN
     Indication: RETINOBLASTOMA
     Route: 042
  3. ETOPOSIDE. [Suspect]
     Active Substance: ETOPOSIDE
     Indication: RETINOBLASTOMA
     Route: 042
  4. MESNA. [Suspect]
     Active Substance: MESNA
     Indication: RETINOBLASTOMA
     Dosage: 0, 3, 6 AND 9 HOUR
     Route: 065
  5. CYCLOPHOSPHAMIDE. [Suspect]
     Active Substance: CYCLOPHOSPHAMIDE
     Indication: RETINOBLASTOMA
     Dosage: FOR AGE GROUP MORE THAN 12 MONTHS
     Route: 042
  6. DOXORUBICIN HYDROCHLORIDE. [Suspect]
     Active Substance: DOXORUBICIN HYDROCHLORIDE
     Indication: RETINOBLASTOMA
     Dosage: FOR AGE GROUP LESS THAN 12 MONTHS
     Route: 042
  7. VINCRISTINE [Suspect]
     Active Substance: VINCRISTINE
     Indication: RETINOBLASTOMA
     Dosage: FOR AGE GROUP LESS THAN 12 MONTHS
     Route: 042
  8. VINCRISTINE [Suspect]
     Active Substance: VINCRISTINE
     Indication: RETINOBLASTOMA
     Dosage: FOR AGE GROUP MORE THAN 12 MONTHS
     Route: 042
  9. GRANULOCYTE-COLONY STIMULATING FACTOR [Concomitant]
     Active Substance: FILGRASTIM
     Indication: RETINOBLASTOMA
     Dosage: 5 MCG/KG/D
     Route: 065
  10. DOXORUBICIN HYDROCHLORIDE. [Suspect]
     Active Substance: DOXORUBICIN HYDROCHLORIDE
     Indication: RETINOBLASTOMA
     Dosage: FOR AGE GROUP MORE THAN 12 MONTHS
     Route: 042

REACTIONS (19)
  - Vomiting [Unknown]
  - Type III immune complex mediated reaction [Unknown]
  - Thrombocytopenia [Unknown]
  - Anaemia [Unknown]
  - Pyrexia [Unknown]
  - Diarrhoea [Unknown]
  - Pneumonia [Unknown]
  - Upper respiratory tract infection [Unknown]
  - Hypophosphataemia [Unknown]
  - White blood cell count abnormal [Unknown]
  - Cellulitis [Unknown]
  - Hypokalaemia [Unknown]
  - Febrile neutropenia [Unknown]
  - Hypoxia [Unknown]
  - Nausea [Unknown]
  - Product use issue [Unknown]
  - Neutropenia [Unknown]
  - Transaminases increased [Unknown]
  - Dyspnoea [Unknown]
